FAERS Safety Report 6313709-X (Version None)
Quarter: 2009Q3

REPORT INFORMATION
  Report Type: 
  Country: None (occurrence: None)
  Receive Date: 20090817
  Receipt Date: 20090817
  Transmission Date: 20100115
  Serious: Yes (Hospitalization)
  Sender: FDA-Public Use
  Company Number: None

PATIENT
  Sex: Male
  Weight: 99.5 kg

DRUGS (8)
  1. CYCLOPHOSPHAMIDE [Suspect]
     Dosage: 2260 MG
  2. CYTARABINE [Suspect]
     Dosage: 1358 MG
  3. DEXAMETHASONE [Suspect]
     Dosage: 336 MG
  4. DOXORUBICIN HCL [Suspect]
     Dosage: 168 MG
  5. METHOTREXATE [Suspect]
     Dosage: 45 MG
  6. PEG-L ASPARAGINASE (K-H) [Suspect]
     Dosage: 6500 MILLION IU
  7. THIOGUANINE [Suspect]
     Dosage: 5880 MG
  8. VINCRISTINE SULFATE [Suspect]
     Dosage: 6 MG

REACTIONS (5)
  - ARACHNOIDITIS [None]
  - CHILLS [None]
  - HEADACHE [None]
  - MENTAL STATUS CHANGES [None]
  - NEUTROPENIA [None]
